FAERS Safety Report 10094917 (Version 1)
Quarter: 2014Q2

REPORT INFORMATION
  Report Type: Spontaneous
  Country: US (occurrence: US)
  Receive Date: 20140422
  Receipt Date: 20140422
  Transmission Date: 20141212
  Serious: No
  Sender: FDA-Public Use
  Company Number: US-BAUSCH-BL-2014-000849

PATIENT
  Age: 81 Year
  Sex: Female
  Weight: 65.38 kg

DRUGS (3)
  1. PROLENSA (BROMFENAC OPHTHALMIC SOLUTION) 0.07% [Suspect]
     Indication: CATARACT OPERATION
     Dosage: ONE DROP INTO BOTH EYES TWO TIMES A DAY FOR THE FIRST TWO WEEKS, THEN ONE DROP INTO BOTH EYES ONE TI
     Route: 047
     Dates: start: 20140129, end: 20140204
  2. ATENOLOL [Concomitant]
     Indication: PRODUCT USED FOR UNKNOWN INDICATION
     Dosage: UNKNOWN
     Route: 065
  3. METHAZOLAMIDE [Concomitant]
     Indication: PRODUCT USED FOR UNKNOWN INDICATION
     Dosage: UNKNOWN
     Route: 065

REACTIONS (1)
  - Eye pain [Recovering/Resolving]
